FAERS Safety Report 17960583 (Version 1)
Quarter: 2020Q2

REPORT INFORMATION
  Report Type: Spontaneous
  Country: FR (occurrence: FR)
  Receive Date: 20200630
  Receipt Date: 20200630
  Transmission Date: 20200714
  Serious: Yes (Death, Life-Threatening)
  Sender: FDA-Public Use
  Company Number: FR-ACCORD-187826

PATIENT
  Age: 31 Year
  Sex: Male

DRUGS (10)
  1. CARBOPLATIN ACCORD [Suspect]
     Active Substance: CARBOPLATIN
     Indication: PLEURAL MESOTHELIOMA MALIGNANT
     Route: 042
     Dates: start: 20191113, end: 20191113
  2. ALIMTA [Suspect]
     Active Substance: PEMETREXED DISODIUM
     Indication: PLEURAL MESOTHELIOMA MALIGNANT
     Route: 042
     Dates: start: 20191113, end: 20191113
  3. ALPRAZOLAM ARROW [Concomitant]
     Active Substance: ALPRAZOLAM
     Dosage: STRENGTH: 0.25 MG, SCORED TABLET
  4. ZAMUDOL L.P [Concomitant]
     Active Substance: TRAMADOL HYDROCHLORIDE
     Dosage: STRENGTH: 100 MG
  5. OROZAMUDOL [Concomitant]
     Active Substance: TRAMADOL
     Dosage: STRENGTH: 50 MG
  6. ABASAGLAR [Concomitant]
     Active Substance: INSULIN GLARGINE
  7. MOVICOL [Concomitant]
     Active Substance: POLYETHYLENE GLYCOL 3350\POTASSIUM CHLORIDE\SODIUM BICARBONATE\SODIUM CHLORIDE
  8. HUMALOG [Concomitant]
     Active Substance: INSULIN LISPRO
  9. PARACETAMOL [Concomitant]
     Active Substance: ACETAMINOPHEN
  10. FOLIC ACID CCD [Concomitant]
     Active Substance: FOLIC ACID
     Dosage: STRENGTH: 0.4 MG

REACTIONS (1)
  - Pancytopenia [Recovering/Resolving]

NARRATIVE: CASE EVENT DATE: 20191124
